FAERS Safety Report 10716864 (Version 1)
Quarter: 2015Q1

REPORT INFORMATION
  Report Type: Report from Study
  Country: DE (occurrence: DE)
  Receive Date: 20150116
  Receipt Date: 20150116
  Transmission Date: 20150721
  Serious: Yes (Death, Other)
  Sender: FDA-Public Use
  Company Number: DE-CELGENE-DEU-2015012041

PATIENT

DRUGS (1)
  1. REVLIMID [Suspect]
     Active Substance: LENALIDOMIDE
     Indication: HODGKIN^S DISEASE
     Route: 048
     Dates: start: 20130904, end: 20140903

REACTIONS (10)
  - Gastrointestinal disorder [Unknown]
  - Nervous system disorder [Unknown]
  - Angiopathy [Unknown]
  - Leukaemia [Unknown]
  - Anaemia [Unknown]
  - Neoplasm [Fatal]
  - Hodgkin^s disease [Fatal]
  - Infection [Unknown]
  - Cardiac disorder [Unknown]
  - Renal disorder [Unknown]
